FAERS Safety Report 5744120-8 (Version None)
Quarter: 2008Q2

REPORT INFORMATION
  Report Type: 
  Country: None (occurrence: None)
  Receive Date: 20080520
  Receipt Date: 20080520
  Transmission Date: 20081010
  Serious: No
  Sender: FDA-Public Use
  Company Number: B0515435A

PATIENT
  Age: 81 Year
  Sex: Female

DRUGS (3)
  1. VALTREX [Suspect]
     Indication: HERPES ZOSTER
     Dosage: 1000MG THREE TIMES PER DAY
     Route: 048
     Dates: start: 20080327
  2. PREDNISOLONE [Concomitant]
     Dosage: 15MG PER DAY
  3. LOXONIN [Concomitant]
     Dosage: 180MG PER DAY

REACTIONS (2)
  - CONFUSIONAL STATE [None]
  - TREMOR [None]
